FAERS Safety Report 6099212-3 (Version None)
Quarter: 2009Q1

REPORT INFORMATION
  Report Type: 
  Country: None (occurrence: None)
  Receive Date: 20090303
  Receipt Date: 20090219
  Transmission Date: 20090719
  Serious: Yes (Other)
  Sender: FDA-Public Use
  Company Number: US-JNJFOC-20090204968

PATIENT
  Age: 64 Year
  Sex: Female

DRUGS (11)
  1. INFLIXIMAB [Suspect]
     Indication: MYELITIS
     Dosage: FOR 9 MONTHS
     Route: 042
  2. INFLIXIMAB [Suspect]
     Indication: IMMUNODEFICIENCY COMMON VARIABLE
     Dosage: WEEK 0, 2 AND 4
     Route: 042
  3. POLYGAM S/D [Concomitant]
     Indication: NON-HODGKIN'S LYMPHOMA
     Dosage: STARTED 7 YEARS AGO
     Route: 042
  4. ACYCLOVIR [Concomitant]
  5. ALENDRONATE SODIUM [Concomitant]
  6. ESOMEPRAZOLE [Concomitant]
  7. FLUTICASONE PROPIONATE [Concomitant]
     Route: 055
  8. SALMETEROL [Concomitant]
     Route: 055
  9. FOLIC ACID [Concomitant]
  10. METFORMIN HCL [Concomitant]
  11. EXENATIDE [Concomitant]

REACTIONS (1)
  - CSF CELL COUNT INCREASED [None]
